FAERS Safety Report 9411007 (Version 2)
Quarter: 2013Q3

REPORT INFORMATION
  Report Type: Spontaneous
  Country: US (occurrence: US)
  Receive Date: 20130719
  Receipt Date: 20130813
  Transmission Date: 20140515
  Serious: No
  Sender: FDA-Public Use
  Company Number: US-TEVA-419864USA

PATIENT
  Age: 23 Year
  Sex: Female
  Weight: 59.02 kg

DRUGS (3)
  1. PARAGARD 380A [Suspect]
     Indication: CONTRACEPTION
     Route: 015
     Dates: start: 20130710, end: 20130716
  2. PARAGARD 380A [Suspect]
     Route: 015
     Dates: start: 20130716
  3. APRI [Concomitant]
     Dosage: 0.15MG-30MCG

REACTIONS (3)
  - Metrorrhagia [Recovered/Resolved]
  - Device expulsion [Recovered/Resolved]
  - Uterine spasm [Recovered/Resolved]
